FAERS Safety Report 14731541 (Version 2)
Quarter: 2018Q2

REPORT INFORMATION
  Report Type: Spontaneous
  Country: BR (occurrence: BR)
  Receive Date: 20180407
  Receipt Date: 20180414
  Transmission Date: 20180711
  Serious: Yes (Death, Hospitalization, Other)
  Sender: FDA-Public Use
  Company Number: BR-AMGEN-BRASP2018047258

PATIENT
  Age: 73 Year
  Sex: Female

DRUGS (1)
  1. ENBREL [Suspect]
     Active Substance: ETANERCEPT
     Indication: RHEUMATIC DISORDER
     Dosage: 1 DF, QWK
     Route: 065
     Dates: start: 2015, end: 201710

REACTIONS (7)
  - Hepatic cancer metastatic [Fatal]
  - Dyspnoea [Not Recovered/Not Resolved]
  - Haematemesis [Not Recovered/Not Resolved]
  - Dizziness [Not Recovered/Not Resolved]
  - Metastases to lung [Not Recovered/Not Resolved]
  - Syncope [Recovered/Resolved]
  - Metastases to stomach [Not Recovered/Not Resolved]

NARRATIVE: CASE EVENT DATE: 201710
